FAERS Safety Report 5091241-1 (Version None)
Quarter: 2006Q3

REPORT INFORMATION
  Report Type: 
  Country: None (occurrence: None)
  Receive Date: 20060825
  Receipt Date: 20060825
  Transmission Date: 20061208
  Serious: Yes (Life-Threatening, Hospitalization)
  Sender: FDA-Public Use
  Company Number: None

PATIENT
  Age: 34 Year
  Sex: Female
  Weight: 90.7194 kg

DRUGS (1)
  1. ETODOLAC [Suspect]
     Indication: STEVENS-JOHNSON SYNDROME
     Dosage: 2 PILLS     2 TIMES A DAY    PO
     Route: 048
     Dates: start: 20041001, end: 20041006

REACTIONS (4)
  - DYSPNOEA [None]
  - LOSS OF CONSCIOUSNESS [None]
  - PRURITUS [None]
  - STEVENS-JOHNSON SYNDROME [None]
